FAERS Safety Report 8596235-7 (Version None)
Quarter: 2012Q3

REPORT INFORMATION
  Report Type: 
  Country: None (occurrence: None)
  Receive Date: 20120815
  Receipt Date: 20120806
  Transmission Date: 20120928
  Serious: Yes (Hospitalization)
  Sender: FDA-Public Use
  Company Number: US-ASTRAZENECA-2012SE32563

PATIENT
  Age: 67 Year
  Sex: Female
  Weight: 72.6 kg

DRUGS (3)
  1. SYMBICORT [Suspect]
     Indication: ASTHMA
     Dosage: TWO PUFFS BID OR MORE
     Route: 055
     Dates: start: 20120516
  2. COMBIVENT [Concomitant]
  3. SYMBICORT [Suspect]
     Indication: CHRONIC OBSTRUCTIVE PULMONARY DISEASE
     Dosage: TWO PUFFS BID OR MORE
     Route: 055
     Dates: start: 20120516

REACTIONS (8)
  - FURUNCLE [None]
  - GENERALISED ERYTHEMA [None]
  - DIARRHOEA [None]
  - DIZZINESS [None]
  - URTICARIA [None]
  - SWELLING [None]
  - DYSPNOEA [None]
  - NAUSEA [None]
